FAERS Safety Report 7979290-4 (Version None)
Quarter: 2011Q4

REPORT INFORMATION
  Report Type: 
  Country: None (occurrence: None)
  Receive Date: 20111214
  Receipt Date: 20111207
  Transmission Date: 20120403
  Serious: Yes (Other)
  Sender: FDA-Public Use
  Company Number: US-BAYER-2011-118597

PATIENT

DRUGS (2)
  1. EXCEDERAIN [Suspect]
     Dosage: 3 DF, ONCE
     Dates: start: 20111207
  2. ALEVE (CAPLET) [Suspect]
     Dosage: 880 MG, ONCE
     Route: 048
     Dates: start: 20111207

REACTIONS (1)
  - UNEVALUABLE EVENT [None]
